FAERS Safety Report 6328648-8 (Version None)
Quarter: 2009Q3

REPORT INFORMATION
  Report Type: 
  Country: None (occurrence: None)
  Receive Date: 20090825
  Receipt Date: 20090825
  Transmission Date: 20100115
  Serious: Yes (Disabling)
  Sender: FDA-Public Use
  Company Number: None

PATIENT
  Age: 82 Year
  Sex: Female
  Weight: 43.0917 kg

DRUGS (6)
  1. GABAPENTIN [Suspect]
     Indication: MUSCLE SPASMS
     Dosage: 3 NIGHTLY 100 MG MOUTH
     Route: 048
     Dates: start: 20090814
  2. GABAPENTIN [Suspect]
     Indication: MUSCLE SPASMS
     Dosage: 3 NIGHTLY 100 MG MOUTH
     Route: 048
     Dates: start: 20090815
  3. GABAPENTIN [Suspect]
     Indication: MUSCLE SPASMS
     Dosage: 3 NIGHTLY 100 MG MOUTH
     Route: 048
     Dates: start: 20090816
  4. MICARDIS [Concomitant]
  5. COUMADIN [Concomitant]
  6. FOSAMAX [Concomitant]

REACTIONS (1)
  - DIZZINESS [None]
